FAERS Safety Report 4724700-9 (Version None)
Quarter: 2005Q3

REPORT INFORMATION
  Report Type: 
  Country: None (occurrence: None)
  Receive Date: 20050720
  Receipt Date: 20050720
  Transmission Date: 20060218
  Serious: Yes (Other)
  Sender: FDA-Public Use
  Company Number: None

PATIENT
  Age: 40 Year
  Sex: Female
  Weight: 89.8122 kg

DRUGS (8)
  1. FENTANYL [Suspect]
     Indication: FIBROMYALGIA
     Dosage: 25MCG   1 EVERY 3 DAYS   TRANSDERMA
     Route: 062
     Dates: start: 20040406, end: 20040506
  2. FENTANYL [Suspect]
     Indication: MIGRAINE
     Dosage: 25MCG   1 EVERY 3 DAYS   TRANSDERMA
     Route: 062
     Dates: start: 20040406, end: 20040506
  3. FENTANYL [Suspect]
     Indication: OVARIAN NEOPLASM
     Dosage: 25MCG   1 EVERY 3 DAYS   TRANSDERMA
     Route: 062
     Dates: start: 20040406, end: 20040506
  4. FENTANYL [Suspect]
     Indication: PAIN
     Dosage: 25MCG   1 EVERY 3 DAYS   TRANSDERMA
     Route: 062
     Dates: start: 20040406, end: 20040506
  5. FENTANYL [Suspect]
     Indication: FIBROMYALGIA
     Dosage: 25MCG   1 EVERY 3 DAYS   TRANSDERMA
     Route: 062
     Dates: start: 20040903, end: 20040924
  6. FENTANYL [Suspect]
     Indication: MIGRAINE
     Dosage: 25MCG   1 EVERY 3 DAYS   TRANSDERMA
     Route: 062
     Dates: start: 20040903, end: 20040924
  7. FENTANYL [Suspect]
     Indication: OVARIAN NEOPLASM
     Dosage: 25MCG   1 EVERY 3 DAYS   TRANSDERMA
     Route: 062
     Dates: start: 20040903, end: 20040924
  8. FENTANYL [Suspect]
     Indication: PAIN
     Dosage: 25MCG   1 EVERY 3 DAYS   TRANSDERMA
     Route: 062
     Dates: start: 20040903, end: 20040924

REACTIONS (5)
  - BLOOD PRESSURE ABNORMAL [None]
  - HEADACHE [None]
  - NAUSEA [None]
  - PHARMACEUTICAL PRODUCT COMPLAINT [None]
  - VOMITING [None]
